FAERS Safety Report 15470594 (Version 2)
Quarter: 2018Q4

REPORT INFORMATION
  Report Type: Spontaneous
  Country: US (occurrence: US)
  Receive Date: 20181005
  Receipt Date: 20181109
  Transmission Date: 20190205
  Serious: No
  Sender: FDA-Public Use
  Company Number: US-BAUSCH-BL-2018-022155

PATIENT
  Age: 74 Year
  Sex: Female

DRUGS (1)
  1. APRISO [Suspect]
     Active Substance: MESALAMINE
     Indication: PRODUCT USED FOR UNKNOWN INDICATION
     Dosage: SUPPOSED TO TAKE 1 CAPSULE FOR 1 WEEK AND THEN TITRATE UP TO 2 CAPSULES PER DAY
     Route: 048
     Dates: start: 20180808

REACTIONS (4)
  - Product physical consistency issue [Not Recovered/Not Resolved]
  - Urinary incontinence [Unknown]
  - Product use complaint [Not Recovered/Not Resolved]
  - Choking [Unknown]

NARRATIVE: CASE EVENT DATE: 2018
